FAERS Safety Report 16707880 (Version 3)
Quarter: 2019Q3

REPORT INFORMATION
  Report Type: Spontaneous
  Country: US (occurrence: US)
  Receive Date: 20190815
  Receipt Date: 20190820
  Transmission Date: 20191004
  Serious: Yes (Other)
  Sender: FDA-Public Use
  Company Number: US-PFIZER INC-2019348973

PATIENT
  Sex: Male

DRUGS (1)
  1. DILANTIN [Suspect]
     Active Substance: PHENYTOIN
     Indication: DYSPNOEA
     Dosage: UNK

REACTIONS (10)
  - Retinal haemorrhage [Unknown]
  - Product use in unapproved indication [Unknown]
  - Feeling drunk [Unknown]
  - Off label use [Unknown]
  - Eye movement disorder [Unknown]
  - Anaemia [Unknown]
  - Arrhythmia [Unknown]
  - Respiratory disorder [Unknown]
  - Ataxia [Unknown]
  - Nystagmus [Unknown]
